FAERS Safety Report 13530564 (Version 1)
Quarter: 2017Q2

REPORT INFORMATION
  Report Type: Spontaneous
  Country: BR (occurrence: BR)
  Receive Date: 20170510
  Receipt Date: 20170510
  Transmission Date: 20170830
  Serious: Yes (Death)
  Sender: FDA-Public Use
  Company Number: PHHY2017BR067802

PATIENT
  Sex: Female

DRUGS (1)
  1. HYDERGINE [Suspect]
     Active Substance: ERGOLOID MESYLATES
     Indication: CEREBRAL DISORDER
     Dosage: 1 DF, QD
     Route: 048

REACTIONS (1)
  - Gastrointestinal carcinoma [Fatal]

NARRATIVE: CASE EVENT DATE: 2000
